FAERS Safety Report 19775089 (Version 1)
Quarter: 2021Q3

REPORT INFORMATION
  Report Type: Spontaneous
  Country: US (occurrence: US)
  Receive Date: 20210901
  Receipt Date: 20210901
  Transmission Date: 20211014
  Serious: No
  Sender: FDA-Public Use
  Company Number: US-PFIZER INC-2021155013

PATIENT
  Age: 73 Year
  Sex: Female
  Weight: 58.97 kg

DRUGS (1)
  1. GENOTROPIN [Suspect]
     Active Substance: SOMATROPIN
     Dosage: 0.3 MG, 3 DAYS A WEEK
     Dates: start: 202102

REACTIONS (6)
  - Eye inflammation [Unknown]
  - Product dose omission issue [Unknown]
  - Off label use [Unknown]
  - Drug dose omission by device [Unknown]
  - Giant cell arteritis [Unknown]
  - Device leakage [Unknown]
